FAERS Safety Report 5620464-5 (Version None)
Quarter: 2008Q1

REPORT INFORMATION
  Report Type: 
  Country: None (occurrence: None)
  Receive Date: 20080208
  Receipt Date: 20080204
  Transmission Date: 20080703
  Serious: Yes (Hospitalization)
  Sender: FDA-Public Use
  Company Number: US-BOEHRINGER INGELHEIM GMBH, GERMANY-2008-BP-01667RO

PATIENT
  Age: 55 Year
  Sex: Female
  Weight: 30 kg

DRUGS (6)
  1. AZATHIOPRINE [Suspect]
     Indication: PANCREATITIS CHRONIC
  2. AZATHIOPRINE [Suspect]
  3. AZATHIOPRINE [Suspect]
  4. MERCAPTOPURINE [Suspect]
     Indication: PANCREATITIS CHRONIC
  5. ALLOPURINOL [Suspect]
     Indication: METABOLIC ABNORMALITY MANAGEMENT
  6. PREDNISOLONE [Concomitant]

REACTIONS (4)
  - DRUG INEFFECTIVE FOR UNAPPROVED INDICATION [None]
  - DRUG LEVEL ABOVE THERAPEUTIC [None]
  - LEUKOPENIA [None]
  - PURINE METABOLISM DISORDER [None]
